FAERS Safety Report 7271018-9 (Version None)
Quarter: 2011Q1

REPORT INFORMATION
  Report Type: 
  Country: None (occurrence: None)
  Receive Date: 20110202
  Receipt Date: 20110122
  Transmission Date: 20110831
  Serious: Yes (Hospitalization)
  Sender: FDA-Public Use
  Company Number: CA-ELI_LILLY_AND_COMPANY-CA201101005742

PATIENT
  Age: 81 Year
  Sex: Female

DRUGS (9)
  1. FORTEO [Suspect]
     Indication: OSTEOPOROSIS
     Dosage: 20 UG, DAILY (1/D)
     Route: 058
     Dates: start: 20101028
  2. TYLENOL                                 /SCH/ [Concomitant]
  3. CORTISONE [Concomitant]
  4. VITAMIN B-12 [Concomitant]
  5. VITAMIN D [Concomitant]
  6. CALCIUM [Concomitant]
  7. VITALUX [Concomitant]
  8. ENBREL [Concomitant]
     Dosage: UNK, WEEKLY (1/W)
  9. LYRICA [Concomitant]

REACTIONS (1)
  - PELVIC FRACTURE [None]
